FAERS Safety Report 7845606-2 (Version None)
Quarter: 2011Q4

REPORT INFORMATION
  Report Type: 
  Country: None (occurrence: None)
  Receive Date: 20111025
  Receipt Date: 20101012
  Transmission Date: 20120403
  Serious: Yes (Other)
  Sender: FDA-Public Use
  Company Number: NL-TEVA-306156ISR

PATIENT
  Sex: Female
  Weight: 54 kg

DRUGS (7)
  1. METHOTREXATE [Concomitant]
     Dosage: 1 /1 WEEKS 2.5MG
     Dates: start: 20040101
  2. ADALIMUMAB [Concomitant]
     Dosage: 1 /2 WEEKS 40MG
     Dates: start: 20070101
  3. ACETAMINOPHEN [Concomitant]
     Dosage: 1 DOSAGE FORMS; 500/20MG
     Dates: start: 20100101
  4. OMEPRAZOLE [Concomitant]
     Dosage: 20 MILLIGRAM;
     Dates: start: 20040101
  5. SIMVASTATIN [Concomitant]
     Dosage: 40 MILLIGRAM;
  6. CARBASALATE CALCIUM [Concomitant]
     Dosage: 100 MILLIGRAM;
     Dates: start: 20070101
  7. BISOPROLOL [Suspect]
     Indication: MYOCARDIAL INFARCTION
     Dates: start: 20070101

REACTIONS (1)
  - RETROPERITONEAL FIBROSIS [None]
